FAERS Safety Report 8596299-0 (Version None)
Quarter: 2012Q3

REPORT INFORMATION
  Report Type: 
  Country: None (occurrence: None)
  Receive Date: 20120815
  Receipt Date: 20120808
  Transmission Date: 20120928
  Serious: Yes (Hospitalization)
  Sender: FDA-Public Use
  Company Number: CA-ELI_LILLY_AND_COMPANY-CA201205004710

PATIENT
  Sex: Female
  Weight: 68.027 kg

DRUGS (15)
  1. FORTEO [Suspect]
     Dosage: 20 UG, QD
     Route: 058
     Dates: start: 20120508
  2. INSULIN [Concomitant]
  3. PREDNISONE TAB [Concomitant]
     Dosage: 4 MG, UNKNOWN
  4. TIAZAC [Concomitant]
  5. VITAMIN B-12 [Concomitant]
  6. VITAMIN D [Concomitant]
  7. ACETAMINOPHEN [Concomitant]
  8. PREDNISONE TAB [Concomitant]
     Dosage: 5 MG, UNKNOWN
  9. METOPROLOL TARTRATE [Concomitant]
  10. LIPITOR [Concomitant]
  11. OMEPRAZOLE [Concomitant]
  12. FORTEO [Suspect]
     Indication: OSTEOPOROSIS
     Dosage: 20 UG, QD
     Route: 058
     Dates: start: 20120405, end: 20120503
  13. MAGNESIUM [Concomitant]
  14. METFORMIN HYDROCHLORIDE [Concomitant]
  15. FOLIC ACID [Concomitant]

REACTIONS (5)
  - INFLAMMATORY BOWEL DISEASE [None]
  - LACTOSE INTOLERANCE [None]
  - CROHN'S DISEASE [None]
  - DUODENITIS [None]
  - DEHYDRATION [None]
